FAERS Safety Report 15739700 (Version 2)
Quarter: 2019Q4

REPORT INFORMATION
  Report Type: Report from Study
  Country: FR (occurrence: FR)
  Receive Date: 20181219
  Receipt Date: 20191217
  Transmission Date: 20200122
  Serious: Yes (Other)
  Sender: FDA-Public Use
  Company Number: FR-TEVA-2018-FR-988640

PATIENT
  Age: 27 Year
  Sex: Female

DRUGS (1)
  1. AMOXICILLIN W/CLAVULANIC ACID [Suspect]
     Active Substance: AMOXICILLIN\CLAVULANIC ACID
     Indication: POSTPARTUM HAEMORRHAGE
     Route: 065

REACTIONS (4)
  - Megacolon [Unknown]
  - Live birth [Unknown]
  - Clostridium difficile infection [Unknown]
  - Maternal exposure during pregnancy [Unknown]
